FAERS Safety Report 18253227 (Version 2)
Quarter: 2020Q3

REPORT INFORMATION
  Report Type: Spontaneous
  Country: US (occurrence: US)
  Receive Date: 20200910
  Receipt Date: 20200916
  Transmission Date: 20201103
  Serious: Yes (Hospitalization)
  Sender: FDA-Public Use
  Company Number: US-009507513-2009USA000668

PATIENT
  Age: 34 Year
  Sex: Female

DRUGS (8)
  1. PREGNYL [Suspect]
     Active Substance: CHORIOGONADOTROPIN ALFA
     Indication: OVULATION INDUCTION
     Dosage: SINGLE INJECTION OF 10,000 UNITS, ON DAY 12, 36 HOURS BEFORE THE EGG HARVESTING PROCEDURE
  2. GONAL?F [Suspect]
     Active Substance: FOLLITROPIN
     Indication: OVULATION INDUCTION
     Dosage: 75 ?UNIT INJECTIONS TWICE DAILY
  3. QUETIAPINE FUMARATE. [Concomitant]
     Active Substance: QUETIAPINE FUMARATE
     Indication: INSOMNIA
     Dosage: OCASIONALLY 25 MG AT BEDTIME
  4. MENOPUR [Suspect]
     Active Substance: FOLLITROPIN\LUTEINIZING HORMONE
     Indication: OVULATION INDUCTION
     Dosage: 75 UNITS IN A ONCE?DAILY AT BEDTIME
  5. CETROTIDE [Suspect]
     Active Substance: CETRORELIX ACETATE
     Indication: OVULATION INDUCTION
     Dosage: 0.25 MG DAILY INJECTIONS
  6. CLONAZEPAM. [Concomitant]
     Active Substance: CLONAZEPAM
     Indication: BIPOLAR I DISORDER
     Dosage: 0.5 MG TWICE A DAY AS NEEDED
  7. STERILE DILUENT (WATER) [Suspect]
     Active Substance: WATER
     Indication: OVULATION INDUCTION
  8. VALPROIC ACID. [Concomitant]
     Active Substance: VALPROIC ACID
     Indication: BIPOLAR I DISORDER
     Dosage: UNK

REACTIONS (1)
  - Mania [Recovered/Resolved]
